FAERS Safety Report 4761539-2 (Version None)
Quarter: 2005Q3

REPORT INFORMATION
  Report Type: 
  Country: None (occurrence: None)
  Receive Date: 20050830
  Receipt Date: 20050429
  Transmission Date: 20060218
  Serious: Yes (Hospitalization, Other)
  Sender: FDA-Public Use
  Company Number: USA050597139

PATIENT
  Age: 21 Year
  Sex: Male

DRUGS (1)
  1. SYMBYAX [Suspect]
     Dates: start: 20040101, end: 20050419

REACTIONS (2)
  - CONVULSION [None]
  - INTENTIONAL MISUSE [None]
